FAERS Safety Report 9702841 (Version 1)
Quarter: 2013Q4

REPORT INFORMATION
  Report Type: Spontaneous
  Country: US (occurrence: None)
  Receive Date: 20131120
  Receipt Date: 20131120
  Transmission Date: 20140711
  Serious: Yes (Other)
  Sender: FDA-Public Use
  Company Number: SYM-2013-12800

PATIENT
  Age: 65 Year
  Sex: Male

DRUGS (1)
  1. ZYCLARA [Suspect]
     Indication: ACTINIC KERATOSIS
     Dosage: 3.75% 1 IN 1 D
     Route: 061

REACTIONS (3)
  - Pityriasis rubra pilaris [None]
  - Application site reaction [None]
  - Acantholysis [None]
